FAERS Safety Report 16460044 (Version 2)
Quarter: 2019Q3

REPORT INFORMATION
  Report Type: Spontaneous
  Country: CI (occurrence: CI)
  Receive Date: 20190620
  Receipt Date: 20190724
  Transmission Date: 20191004
  Serious: Yes (Death, Hospitalization, Other)
  Sender: FDA-Public Use
  Company Number: CI-TOLMAR, INC.-TOLG20192292

PATIENT
  Age: 61 Year
  Sex: Female

DRUGS (2)
  1. DICLOFENAC SODIUM. [Suspect]
     Active Substance: DICLOFENAC SODIUM
     Indication: BACK PAIN
     Dosage: 150 MG
     Route: 048
  2. DICLOFENAC SODIUM. [Suspect]
     Active Substance: DICLOFENAC SODIUM
     Dosage: UNKNOWN
     Route: 065

REACTIONS (12)
  - Stevens-Johnson syndrome [Recovered/Resolved]
  - Pain [None]
  - Tachycardia [None]
  - Pyrexia [None]
  - Skin exfoliation [None]
  - Systemic inflammatory response syndrome [None]
  - Contraindicated product administered [None]
  - Erythema [None]
  - Toxic epidermal necrolysis [Fatal]
  - Mucosal erosion [None]
  - Nikolsky^s sign [None]
  - Lymphopenia [None]
